FAERS Safety Report 14764590 (Version 4)
Quarter: 2020Q4

REPORT INFORMATION
  Report Type: Report from Study
  Country: CA (occurrence: CA)
  Receive Date: 20180416
  Receipt Date: 20201026
  Transmission Date: 20210113
  Serious: Yes (Other)
  Sender: FDA-Public Use
  Company Number: PHHY2016CA170317

PATIENT
  Age: 71 Year
  Sex: Female

DRUGS (16)
  1. XOLAIR [Suspect]
     Active Substance: OMALIZUMAB
     Dosage: UNK
     Route: 058
     Dates: start: 20161206
  2. XOLAIR [Suspect]
     Active Substance: OMALIZUMAB
     Dosage: 300 MG, EVERY 4 WEEKS
     Route: 058
     Dates: start: 20180319
  3. XOLAIR [Suspect]
     Active Substance: OMALIZUMAB
     Dosage: 300 MG, EVERY 4 WEEKS
     Route: 058
     Dates: start: 20190227
  4. XOLAIR [Suspect]
     Active Substance: OMALIZUMAB
     Dosage: 300 MG, EVERY 4 WEEKS
     Route: 058
     Dates: start: 20190521
  5. XOLAIR [Suspect]
     Active Substance: OMALIZUMAB
     Dosage: 300 MG, EVERY 4 WEEKS
     Route: 058
     Dates: start: 20190617
  6. XOLAIR [Suspect]
     Active Substance: OMALIZUMAB
     Dosage: 300 MG EVERY 4 WEEKS
     Route: 058
     Dates: start: 20191007
  7. XOLAIR [Suspect]
     Active Substance: OMALIZUMAB
     Dosage: UNK
     Route: 058
     Dates: start: 20170330
  8. XOLAIR [Suspect]
     Active Substance: OMALIZUMAB
     Dosage: 300 MG, EVERY 4 WEEKS
     Route: 058
     Dates: start: 20181112, end: 20181112
  9. XOLAIR [Suspect]
     Active Substance: OMALIZUMAB
     Dosage: 300 MG, EVERY 4 WEEKS
     Route: 058
     Dates: start: 20190326
  10. AERIUS [Concomitant]
     Indication: PRODUCT USED FOR UNKNOWN INDICATION
     Dosage: UNK UNK, QD (IN THE MORNING)
     Route: 065
  11. XOLAIR [Suspect]
     Active Substance: OMALIZUMAB
     Dosage: 300 MG EVERY 4 WEEKS
     Route: 058
  12. XOLAIR [Suspect]
     Active Substance: OMALIZUMAB
     Indication: CHRONIC SPONTANEOUS URTICARIA
     Dosage: 300 MG, EVERY 4 WEEKS
     Route: 058
     Dates: start: 20150918
  13. NEORAL [Suspect]
     Active Substance: CYCLOSPORINE
     Dosage: 100 MG, BID
     Route: 065
  14. XOLAIR [Suspect]
     Active Substance: OMALIZUMAB
     Dosage: UNK
     Route: 058
     Dates: start: 20171102
  15. NEORAL [Suspect]
     Active Substance: CYCLOSPORINE
     Indication: URTICARIA
     Dosage: UNK
     Route: 065
  16. REACTIN [Concomitant]
     Indication: PRODUCT USED FOR UNKNOWN INDICATION
     Dosage: 20 MG, QN (AT NIGHT)
     Route: 065

REACTIONS (22)
  - Asthenia [Unknown]
  - Urticaria [Recovered/Resolved]
  - Erythema [Unknown]
  - Urticaria [Not Recovered/Not Resolved]
  - Insomnia [Unknown]
  - Chills [Unknown]
  - Skin plaque [Unknown]
  - Visual impairment [Unknown]
  - Photophobia [Unknown]
  - Quality of life decreased [Unknown]
  - Renal disorder [Unknown]
  - Cataract [Unknown]
  - Urticaria [Recovered/Resolved]
  - Back pain [Unknown]
  - Emotional distress [Unknown]
  - Oropharyngeal pain [Unknown]
  - Pruritus [Not Recovered/Not Resolved]
  - Skin disorder [Unknown]
  - Swelling [Unknown]
  - Papule [Unknown]
  - Nasal congestion [Unknown]
  - Skin burning sensation [Unknown]

NARRATIVE: CASE EVENT DATE: 201709
